FAERS Safety Report 6861558-6 (Version None)
Quarter: 2010Q3

REPORT INFORMATION
  Report Type: 
  Country: None (occurrence: None)
  Receive Date: 20100721
  Receipt Date: 20100713
  Transmission Date: 20110219
  Serious: Yes (Other)
  Sender: FDA-Public Use
  Company Number: CA-BAYER-201017285NA

PATIENT
  Age: 24 Year
  Sex: Female
  Weight: 54 kg

DRUGS (5)
  1. AVELOX [Suspect]
     Indication: SINUSITIS
     Dosage: DOSE: 2 TAKEN
     Route: 048
     Dates: start: 20081219, end: 20081221
  2. AVELOX [Suspect]
     Route: 048
  3. MULTI-VITAMINS [Concomitant]
     Indication: PRODUCT USED FOR UNKNOWN INDICATION
     Route: 065
  4. NASONEX [Concomitant]
     Indication: PRODUCT USED FOR UNKNOWN INDICATION
     Route: 065
  5. VALTREX [Concomitant]
     Indication: PRODUCT USED FOR UNKNOWN INDICATION
     Route: 065

REACTIONS (8)
  - ANXIETY [None]
  - CRYING [None]
  - DEPRESSION SUICIDAL [None]
  - HALLUCINATION [None]
  - INSOMNIA [None]
  - MORBID THOUGHTS [None]
  - PARANOIA [None]
  - SUICIDAL IDEATION [None]
